FAERS Safety Report 21293550 (Version 4)
Quarter: 2022Q4

REPORT INFORMATION
  Report Type: Spontaneous
  Country: US (occurrence: US)
  Receive Date: 20220905
  Receipt Date: 20221219
  Transmission Date: 20230113
  Serious: No
  Sender: FDA-Public Use
  Company Number: US-ALXN-A202210434

PATIENT
  Sex: Female

DRUGS (5)
  1. SOLIRIS [Suspect]
     Active Substance: ECULIZUMAB
     Indication: Myasthenia gravis
     Dosage: 1200 MG, Q2W
     Route: 042
     Dates: start: 20220330
  2. SOLIRIS [Suspect]
     Active Substance: ECULIZUMAB
     Indication: Rheumatoid arthritis
  3. ULTOMIRIS [Suspect]
     Active Substance: RAVULIZUMAB-CWVZ
     Indication: Myasthenia gravis
     Dosage: 3000 MG, UNK
     Route: 042
     Dates: start: 20220929
  4. ULTOMIRIS [Suspect]
     Active Substance: RAVULIZUMAB-CWVZ
     Indication: Rheumatoid arthritis
  5. BENADRYL [Concomitant]
     Active Substance: DIPHENHYDRAMINE HYDROCHLORIDE
     Indication: Product used for unknown indication
     Dosage: UNK
     Route: 065

REACTIONS (9)
  - Oral mucosal blistering [Unknown]
  - Off label use [Unknown]
  - Blister [Unknown]
  - Confusional state [Not Recovered/Not Resolved]
  - Bone pain [Recovered/Resolved]
  - Cognitive disorder [Recovering/Resolving]
  - Myalgia [Unknown]
  - Diarrhoea [Unknown]
  - Rash [Unknown]
